FAERS Safety Report 19479805 (Version 1)
Quarter: 2021Q2

REPORT INFORMATION
  Report Type: Spontaneous
  Country: IN (occurrence: IN)
  Receive Date: 20210630
  Receipt Date: 20210630
  Transmission Date: 20210717
  Serious: Yes (Death, Other)
  Sender: FDA-Public Use
  Company Number: IN-PFIZER INC-2021008605

PATIENT
  Age: 47 Year
  Sex: Male

DRUGS (16)
  1. LORBRIQUA [Suspect]
     Active Substance: LORLATINIB
     Indication: SQUAMOUS CELL CARCINOMA OF LUNG
     Dosage: 100 MG, ONCE DAILY
     Route: 048
     Dates: start: 20200821
  2. LORBRIQUA [Suspect]
     Active Substance: LORLATINIB
     Dosage: 100 MG, 1X/DAY
     Route: 048
     Dates: start: 20210313
  3. SILODERM [Concomitant]
     Dosage: UNK, 6 HOURLY
     Route: 061
  4. CLOBAZAM. [Concomitant]
     Active Substance: CLOBAZAM
     Dosage: 5 MG, 1 TABLE ONCE DAILY IN THE MORNING
  5. LACOSAMIDE. [Concomitant]
     Active Substance: LACOSAMIDE
     Dosage: 1 TABLET, TWICE DAILY
  6. UDILIV [Concomitant]
     Active Substance: URSODIOL
     Dosage: 300 MG, TWICE DAILY
  7. FOLVITE [FOLIC ACID] [Concomitant]
     Dosage: 5 MG, ONCE DAILY
  8. RECLIDE MR [Concomitant]
     Dosage: 30 MG, BEFORE BREAKFAST
  9. TRAJENTA DUO [Concomitant]
     Active Substance: LINAGLIPTIN\METFORMIN HYDROCHLORIDE
     Dosage: 1 TABLET (2.5/500), 1 TABLET TWICE DAILY AFTER BREAKFAST AND AFTER DINNER
  10. VALPROL CR [Concomitant]
     Dosage: 500 MG, 1 TABLET TWICE DAILY
  11. DEXAMETHASONE. [Concomitant]
     Active Substance: DEXAMETHASONE
     Dosage: 4 MG, ONCE DAILY
  12. DUPHALAC [Concomitant]
     Active Substance: LACTULOSE
     Dosage: 20 ML, TWICE DAILY (STOP IF LOOSE MOTION)
  13. ELTROXIN [Concomitant]
     Active Substance: LEVOTHYROXINE
     Dosage: 50 UG, 1 TABLET ONCE DAILY
  14. CLOBAZAM. [Concomitant]
     Active Substance: CLOBAZAM
     Dosage: 10 MG, 1 TABLET ONCE DAILY AT BEDTIME
  15. REGLAN [Concomitant]
     Active Substance: METOCLOPRAMIDE HYDROCHLORIDE
     Dosage: 10 MG, 1 TABLET THRICE DAILY BEFORE FOOD
  16. DEXAMETHASONE. [Concomitant]
     Active Substance: DEXAMETHASONE
     Dosage: 2 MG, ONCE DAILY THEN AS NECESSARY

REACTIONS (2)
  - Death [Fatal]
  - Neoplasm progression [Unknown]

NARRATIVE: CASE EVENT DATE: 20201217
